FAERS Safety Report 9647806 (Version 1)
Quarter: 2013Q4

REPORT INFORMATION
  Report Type: Spontaneous
  Country: BR (occurrence: BR)
  Receive Date: 20131028
  Receipt Date: 20131028
  Transmission Date: 20140711
  Serious: Yes (Disabling, Other)
  Sender: FDA-Public Use
  Company Number: BR-SHIRE-ALL1-2013-07201

PATIENT
  Age: 72 Year
  Sex: Female

DRUGS (9)
  1. MESACOL MMX [Suspect]
     Indication: CONSTIPATION
     Dosage: 1.2 G, UNKNOWN
     Route: 048
     Dates: start: 20130924, end: 20130928
  2. MESACOL MMX [Suspect]
     Indication: FLATULENCE
  3. MESACOL MMX [Suspect]
     Indication: ABDOMINAL PAIN
  4. PARIET [Concomitant]
     Indication: PRODUCT USED FOR UNKNOWN INDICATION
     Dosage: 20 MG, 1X/DAY:QD
     Route: 065
  5. SUCRAFILM [Concomitant]
     Indication: PRODUCT USED FOR UNKNOWN INDICATION
     Dosage: 1 DF, UNKNOWN
     Route: 065
  6. NEOZINE                            /00038601/ [Concomitant]
     Indication: PRODUCT USED FOR UNKNOWN INDICATION
     Dosage: UNK UNK, UNKNOWN
     Route: 065
  7. DIENPAX [Concomitant]
     Indication: PRODUCT USED FOR UNKNOWN INDICATION
     Dosage: 1 DF, 1X/DAY:QD
     Route: 065
  8. LUFTAL                             /06269601/ [Concomitant]
     Indication: PRODUCT USED FOR UNKNOWN INDICATION
     Dosage: UNK UNK, UNKNOWN
     Route: 065
  9. DIPIRONE [Concomitant]
     Indication: PRODUCT USED FOR UNKNOWN INDICATION
     Dosage: 1 DF, UNKNOWN
     Route: 065

REACTIONS (6)
  - Swelling face [Recovering/Resolving]
  - Local swelling [Recovering/Resolving]
  - Abasia [Recovered/Resolved]
  - Fluid retention [Recovering/Resolving]
  - Pain in extremity [Unknown]
  - Off label use [Recovered/Resolved]
